FAERS Safety Report 6025067-9 (Version None)
Quarter: 2008Q4

REPORT INFORMATION
  Report Type: 
  Country: None (occurrence: None)
  Receive Date: 20081231
  Receipt Date: 20081222
  Transmission Date: 20090506
  Serious: Yes (Other)
  Sender: FDA-Public Use
  Company Number: US-TEVA-183171USA

PATIENT
  Age: 13 Year
  Sex: Male

DRUGS (5)
  1. ETOPOSIDE [Suspect]
     Indication: ACUTE LYMPHOCYTIC LEUKAEMIA RECURRENT
  2. VINCRISTINE [Suspect]
     Indication: ACUTE LYMPHOCYTIC LEUKAEMIA RECURRENT
  3. DEXAMETHASONE [Suspect]
  4. CYTARABINE [Suspect]
  5. METHOTREXATE [Suspect]
     Indication: ACUTE LYMPHOCYTIC LEUKAEMIA RECURRENT

REACTIONS (2)
  - LEUKOENCEPHALOPATHY [None]
  - MYELOPATHY [None]
